FAERS Safety Report 6644390-8 (Version None)
Quarter: 2010Q1

REPORT INFORMATION
  Report Type: 
  Country: None (occurrence: None)
  Receive Date: 20100322
  Receipt Date: 20100316
  Transmission Date: 20100710
  Serious: Yes (Hospitalization, Disabling)
  Sender: FDA-Public Use
  Company Number: DK-ROCHE-649498

PATIENT

DRUGS (2)
  1. BEVACIZUMAB [Suspect]
     Route: 065
     Dates: start: 20080125, end: 20090625
  2. ERLOTINIB [Suspect]
     Route: 065
     Dates: start: 20080125, end: 20090625

REACTIONS (1)
  - SKIN ULCER [None]
